FAERS Safety Report 14718681 (Version 1)
Quarter: 2018Q2

REPORT INFORMATION
  Report Type: Report from Study
  Country: FR (occurrence: FR)
  Receive Date: 20180405
  Receipt Date: 20180405
  Transmission Date: 20180711
  Serious: Yes (Hospitalization)
  Sender: FDA-Public Use
  Company Number: FR-ROCHE-2060292

PATIENT
  Age: 59 Year
  Sex: Female
  Weight: 53 kg

DRUGS (2)
  1. DARATUMUMAB [Suspect]
     Active Substance: DARATUMUMAB
     Indication: LUNG NEOPLASM MALIGNANT
     Dosage: WEEKLY FOR 3 CYCLES (DAY 1, 8 AND 15), AND DAY 1 OF EVERY 21-DAY CYCLE THEREAFTER (AS PER PROTOCOL).
     Route: 042
  2. ATEZOLIZUMAB. [Suspect]
     Active Substance: ATEZOLIZUMAB
     Indication: LUNG NEOPLASM MALIGNANT
     Dosage: ON DAY 2 OF CYCLE 1 AND ON DAY 1 OF EVERY 21-DAY CYCLE THEREAFTER (AS PER PROTOCOL).
     Route: 042
     Dates: start: 20171109, end: 20180108

REACTIONS (1)
  - Pneumonia [Recovered/Resolved]

NARRATIVE: CASE EVENT DATE: 20180112
